FAERS Safety Report 12245933 (Version 1)
Quarter: 2016Q2

REPORT INFORMATION
  Report Type: Spontaneous
  Country: US (occurrence: None)
  Receive Date: 20160406
  Receipt Date: 20160406
  Transmission Date: 20160815
  Serious: Yes (Hospitalization)
  Sender: FDA-Public Use
  Company Number: None

PATIENT
  Age: 70 Year
  Sex: Male
  Weight: 46.7 kg

DRUGS (11)
  1. PEMBROLIZUMAB, 100MG/4ML MERCK [Suspect]
     Active Substance: PEMBROLIZUMAB
     Indication: MESOTHELIOMA
     Route: 041
     Dates: start: 20151014, end: 20160217
  2. PYRIDOXINE HCL (VITAMIN B-6 ORAL) [Concomitant]
  3. VITAMIN A [Concomitant]
     Active Substance: VITAMIN A
  4. LANCETS (ONE TOUCH DELICA) [Concomitant]
  5. LOSARTAN POTASSIUM (LOSARTAN ORAL) [Concomitant]
  6. ASPIRIN. [Concomitant]
     Active Substance: ASPIRIN
  7. BLOOD SUGAR DIAGNOSTIC (ONETOUCH VERIO) [Concomitant]
  8. IRON (FERROUS SULFATE) [Concomitant]
  9. PREDNISONE. [Concomitant]
     Active Substance: PREDNISONE
  10. METOPROLOL-XL (TOPROL-XL) [Concomitant]
  11. BLOOD-GLUCOSE METER (ONETOUCH VERIO IQ METER) [Concomitant]

REACTIONS (2)
  - Colitis [None]
  - Fatigue [None]

NARRATIVE: CASE EVENT DATE: 20160330
